FAERS Safety Report 7397173-8 (Version None)
Quarter: 2011Q2

REPORT INFORMATION
  Report Type: 
  Country: None (occurrence: None)
  Receive Date: 20110406
  Receipt Date: 20110329
  Transmission Date: 20111010
  Serious: Yes (Other)
  Sender: FDA-Public Use
  Company Number: B0710913A

PATIENT
  Sex: Female
  Weight: 4 kg

DRUGS (2)
  1. ZANTAC [Suspect]
     Dosage: 32MG TWICE PER DAY
     Route: 048
     Dates: start: 20101229
  2. DOMPERIDONE [Suspect]
     Dosage: 1MG THREE TIMES PER DAY
     Route: 048
     Dates: start: 20101229, end: 20101231

REACTIONS (1)
  - EXTRAPYRAMIDAL DISORDER [None]
